FAERS Safety Report 5491262-0 (Version None)
Quarter: 2007Q4

REPORT INFORMATION
  Report Type: 
  Country: None (occurrence: None)
  Receive Date: 20071017
  Receipt Date: 20071008
  Transmission Date: 20080405
  Serious: Yes (Hospitalization, Disabling, Other)
  Sender: FDA-Public Use
  Company Number: 236561K07USA

PATIENT
  Age: 59 Year
  Sex: Female
  Weight: 76.2043 kg

DRUGS (3)
  1. REBIF [Suspect]
     Indication: MULTIPLE SCLEROSIS
     Dosage: 44 MCG, 3 IN 1 WEEKS, SUBCUTANEOUS
     Route: 058
     Dates: start: 20070509
  2. LORTAB [Concomitant]
  3. KEPPRA [Concomitant]

REACTIONS (5)
  - CLAVICLE FRACTURE [None]
  - FALL [None]
  - ROTATOR CUFF SYNDROME [None]
  - SUPRAVENTRICULAR TACHYCARDIA [None]
  - UPPER LIMB FRACTURE [None]
